FAERS Safety Report 17751284 (Version 1)
Quarter: 2020Q2

REPORT INFORMATION
  Report Type: Report from Study
  Country: IT (occurrence: IT)
  Receive Date: 20200506
  Receipt Date: 20200506
  Transmission Date: 20200714
  Serious: Yes (Other)
  Sender: FDA-Public Use
  Company Number: NVSC2020IT121981

PATIENT
  Age: 60 Year
  Sex: Male

DRUGS (3)
  1. PAZOPANIB [Suspect]
     Active Substance: PAZOPANIB
     Indication: PRODUCT USED FOR UNKNOWN INDICATION
     Dosage: 800 MG, QD FOR 4 WEEKS
     Route: 065
     Dates: start: 201909
  2. PAZOPANIB [Suspect]
     Active Substance: PAZOPANIB
     Dosage: 600 MG, QD FOR 4 WEEKS
     Route: 065
     Dates: start: 201911, end: 202001
  3. PAZOPANIB [Suspect]
     Active Substance: PAZOPANIB
     Dosage: 800 MG, QD FOR 4 WEEKS
     Route: 065
     Dates: start: 201910

REACTIONS (5)
  - Metastases to lymph nodes [Unknown]
  - Hypertransaminasaemia [Unknown]
  - Metastases to lung [Unknown]
  - Mucosal inflammation [Unknown]
  - Hyperthyroidism [Unknown]

NARRATIVE: CASE EVENT DATE: 201909
